FAERS Safety Report 8589461-4 (Version None)
Quarter: 2012Q3

REPORT INFORMATION
  Report Type: 
  Country: None (occurrence: None)
  Receive Date: 20120813
  Receipt Date: 20120809
  Transmission Date: 20120928
  Serious: Yes (Death)
  Sender: FDA-Public Use
  Company Number: JP-B.I. PHARMACEUTICALS,INC./RIDGEFIELD-2012-BP-17909NB

PATIENT
  Weight: 56.7 kg

DRUGS (7)
  1. PRADAXA [Suspect]
     Indication: ATRIAL FIBRILLATION
     Dosage: 220 MG
     Route: 048
     Dates: start: 20120311, end: 20120314
  2. ALENDRONATE SODIUM [Concomitant]
     Route: 048
  3. NEORAL [Concomitant]
     Route: 048
  4. SULFAMETHOXAZOLE AND TRIMETHOPRIM [Concomitant]
     Route: 048
  5. FUNGUARD [Concomitant]
     Route: 042
  6. LANSOPRAZOLE [Concomitant]
     Route: 048
  7. PREDNISOLONE [Concomitant]
     Route: 048

REACTIONS (2)
  - PULMONARY ALVEOLAR HAEMORRHAGE [None]
  - HAEMOPTYSIS [None]
